FAERS Safety Report 14587982 (Version 1)
Quarter: 2018Q1

REPORT INFORMATION
  Report Type: Report from Study
  Country: AU (occurrence: AU)
  Receive Date: 20180301
  Receipt Date: 20180301
  Transmission Date: 20180509
  Serious: Yes (Hospitalization, Other)
  Sender: FDA-Public Use
  Company Number: AU-MYLANLABS-2017M1057989

PATIENT
  Age: 31 Year
  Sex: Male
  Weight: 85 kg

DRUGS (11)
  1. CLOZARIL [Suspect]
     Active Substance: CLOZAPINE
     Dosage: 500 MG, UNK
     Route: 048
     Dates: start: 201212
  2. AMISULPRIDE [Concomitant]
     Active Substance: AMISULPRIDE
     Indication: PRODUCT USED FOR UNKNOWN INDICATION
     Dosage: 400 MG, BID
  3. VENLAFAXINE [Concomitant]
     Active Substance: VENLAFAXINE HYDROCHLORIDE
     Indication: DEPRESSION
     Dosage: 150 MG, QD
     Route: 048
  4. CLOZARIL [Suspect]
     Active Substance: CLOZAPINE
     Indication: SCHIZOPHRENIA
     Dosage: 175 MG, UNK
     Route: 048
     Dates: start: 20040121, end: 20151220
  5. CLOZARIL [Suspect]
     Active Substance: CLOZAPINE
     Dosage: 100 MG, QD
     Route: 048
     Dates: start: 2016
  6. BENZTROPINE. [Concomitant]
     Active Substance: BENZTROPINE
     Dosage: 1 MG, QD
     Route: 048
     Dates: start: 20151219, end: 20151220
  7. OLANZAPINE. [Concomitant]
     Active Substance: OLANZAPINE
     Indication: PRODUCT USED FOR UNKNOWN INDICATION
     Dosage: 15 MG, PM
  8. BENZTROPINE. [Concomitant]
     Active Substance: BENZTROPINE
     Indication: PRODUCT USED FOR UNKNOWN INDICATION
     Dosage: 2 MG, QD
     Route: 048
     Dates: end: 20151218
  9. CLOZARIL [Suspect]
     Active Substance: CLOZAPINE
     Dosage: 550 MG, QD
     Route: 048
     Dates: start: 20151221
  10. CLOZARIL [Suspect]
     Active Substance: CLOZAPINE
     Dosage: 400 MG, UNK
     Route: 048
     Dates: start: 2017, end: 20170720
  11. CLOZARIL [Suspect]
     Active Substance: CLOZAPINE
     Dosage: UNK
     Route: 048
     Dates: start: 20170809

REACTIONS (10)
  - Antipsychotic drug level below therapeutic [Unknown]
  - Hallucination, auditory [Recovering/Resolving]
  - Agitation [Recovering/Resolving]
  - Mental impairment [Not Recovered/Not Resolved]
  - Blood creatine phosphokinase increased [Recovering/Resolving]
  - Treatment noncompliance [Recovered/Resolved]
  - Delusion [Recovering/Resolving]
  - Blood urea increased [Unknown]
  - Incorrect dose administered [Unknown]
  - Platelet count decreased [Recovered/Resolved]

NARRATIVE: CASE EVENT DATE: 20121025
